FAERS Safety Report 6565543-3 (Version None)
Quarter: 2010Q1

REPORT INFORMATION
  Report Type: 
  Country: None (occurrence: None)
  Receive Date: 20100201
  Receipt Date: 20100126
  Transmission Date: 20100710
  Serious: Yes (Other)
  Sender: FDA-Public Use
  Company Number: DE-SANOFI-AVENTIS-2010SA005311

PATIENT
  Age: 64 Year
  Sex: Male

DRUGS (6)
  1. OXALIPLATIN [Suspect]
     Indication: RECTAL CANCER
     Route: 041
     Dates: start: 20090921, end: 20090921
  2. OXALIPLATIN [Suspect]
     Route: 041
     Dates: start: 20091020, end: 20091020
  3. BEVACIZUMAB [Suspect]
     Indication: RECTAL CANCER
     Route: 041
     Dates: start: 20090921, end: 20090921
  4. BEVACIZUMAB [Suspect]
     Route: 041
     Dates: start: 20091020, end: 20091020
  5. CAPECITABINE [Suspect]
     Indication: RECTAL CANCER
     Route: 048
     Dates: start: 20090921
  6. CAPECITABINE [Suspect]
     Route: 048
     Dates: end: 20091026

REACTIONS (1)
  - FAILURE TO ANASTOMOSE [None]
